FAERS Safety Report 10460973 (Version 6)
Quarter: 2014Q4

REPORT INFORMATION
  Report Type: Spontaneous
  Country: JP (occurrence: JP)
  Receive Date: 20140918
  Receipt Date: 20141124
  Transmission Date: 20150528
  Serious: Yes (Life-Threatening, Other)
  Sender: FDA-Public Use
  Company Number: JP-BEH-2014045129

PATIENT
  Age: 85 Year
  Sex: Male
  Weight: 60 kg

DRUGS (13)
  1. SOLULACT [Concomitant]
     Route: 041
     Dates: start: 20140910, end: 20140913
  2. DORMICUM [Concomitant]
     Active Substance: MIDAZOLAM\MIDAZOLAM HYDROCHLORIDE
     Dosage: 10MG X 5 AMPLES /1 DAY
     Route: 041
     Dates: start: 20140910, end: 20140913
  3. NOR-ADRENALIN [Concomitant]
     Dosage: 5MG X 4 /1 DAY
     Route: 041
     Dates: start: 20140910, end: 20140913
  4. OMEPRAZOLE. [Concomitant]
     Active Substance: OMEPRAZOLE
     Route: 042
     Dates: start: 20140910, end: 20140913
  5. ALBUMINAR [Suspect]
     Active Substance: ALBUMIN (HUMAN)
     Indication: FLUID REPLACEMENT
     Dosage: 2 VIALS/1 DAY
     Route: 041
     Dates: start: 20140911
  6. PLATELETS [Concomitant]
     Active Substance: HUMAN PLATELET, ALLOGENIC
     Dates: start: 20140911
  7. FRESH FROZEN PLASMA [Concomitant]
     Active Substance: HUMAN PLASMA
     Dates: start: 20140910
  8. FRESH FROZEN PLASMA [Concomitant]
     Active Substance: HUMAN PLASMA
     Dates: start: 20140911
  9. ALL OTHER THERAPEUTIC PRODUCTS [Concomitant]
     Active Substance: UNSPECIFIED INGREDIENT
     Route: 041
     Dates: start: 20140910
  10. NEUART [Concomitant]
     Dosage: 1500IU X 2 VIALS/1 DAY
     Route: 041
     Dates: start: 20140910, end: 20140912
  11. ALBUMINAR [Suspect]
     Active Substance: ALBUMIN (HUMAN)
     Indication: SEPTIC SHOCK
     Dosage: 2 VIALS/1 DAY
     Route: 041
     Dates: start: 20140910
  12. SANGLOPOR I.V. INFUSION 2.5G [Concomitant]
     Dosage: 2 VIALS; 1/1 DAY
     Route: 041
     Dates: start: 20140910, end: 20140912
  13. OTHER BETA-LACTAM ANTIBACTERIALS [Concomitant]
     Active Substance: UNSPECIFIED INGREDIENT
     Dosage: 1-0.25G X 3 /1 DAY
     Route: 041
     Dates: start: 20140910, end: 20140913

REACTIONS (5)
  - Anaphylactic reaction [Recovered/Resolved]
  - Heart rate decreased [Recovered/Resolved]
  - Anaphylactic shock [Recovered/Resolved]
  - Hypotension [Recovered/Resolved]
  - Blood pressure decreased [Recovered/Resolved]

NARRATIVE: CASE EVENT DATE: 20140911
